FAERS Safety Report 7348436-3 (Version None)
Quarter: 2011Q1

REPORT INFORMATION
  Report Type: 
  Country: None (occurrence: None)
  Receive Date: 20110311
  Receipt Date: 20110308
  Transmission Date: 20110831
  Serious: Yes (Death)
  Sender: FDA-Public Use
  Company Number: PHHY2010DE48879

PATIENT
  Sex: Male

DRUGS (1)
  1. ZOMETA [Suspect]
     Indication: PROSTATE CANCER
     Dosage: THRICE EVERY 3 WEEKS, SUBSEQUENTLY ONCE AFTER 4 WEEKS
     Route: 042
     Dates: start: 20100501

REACTIONS (3)
  - RENAL DISORDER [None]
  - NEOPLASM MALIGNANT [None]
  - BLOOD CREATININE INCREASED [None]
